FAERS Safety Report 12588216 (Version 1)
Quarter: 2016Q3

REPORT INFORMATION
  Report Type: Spontaneous
  Country: US (occurrence: US)
  Receive Date: 20160725
  Receipt Date: 20160725
  Transmission Date: 20161109
  Serious: No
  Sender: FDA-Public Use
  Company Number: US-JNJFOC-20160500170

PATIENT
  Sex: Female

DRUGS (7)
  1. ALL OTHER THERAPEUTIC PRODUCTS [Concomitant]
     Active Substance: UNSPECIFIED INGREDIENT
     Indication: HYPERTENSION
     Dosage: 2 TIMES PER DAY, 5-6 YEARS
     Route: 065
  2. BENADRYL ULTRATABS [Concomitant]
     Indication: MULTIPLE ALLERGIES
     Route: 048
  3. DIPHENHYDRAMINE HYDROCHLORIDE. [Concomitant]
     Active Substance: DIPHENHYDRAMINE HYDROCHLORIDE
     Indication: MULTIPLE ALLERGIES
     Dosage: 1, AS NEEDED, YEARS
     Route: 065
  4. CHILDRENS ZYRTEC [Suspect]
     Active Substance: CETIRIZINE HYDROCHLORIDE
     Indication: SINUS CONGESTION
     Dosage: 2ML, 1 TIME AS NEEDED
     Route: 048
  5. BENADRYL ULTRATABS [Concomitant]
     Indication: SINUS CONGESTION
     Route: 048
  6. CHILDRENS ZYRTEC [Suspect]
     Active Substance: CETIRIZINE HYDROCHLORIDE
     Indication: MULTIPLE ALLERGIES
     Dosage: 2ML, 1 TIME AS NEEDED
     Route: 048
  7. ZYRTEC [Concomitant]
     Active Substance: CETIRIZINE HYDROCHLORIDE
     Indication: MULTIPLE ALLERGIES
     Dosage: 1, WHEN NEEDED, 7 DAYS
     Route: 065

REACTIONS (1)
  - Somnolence [Recovered/Resolved]
